FAERS Safety Report 7546017-X (Version None)
Quarter: 2011Q2

REPORT INFORMATION
  Report Type: 
  Country: None (occurrence: None)
  Receive Date: 20110614
  Receipt Date: 20110608
  Transmission Date: 20111010
  Serious: Yes (Hospitalization)
  Sender: FDA-Public Use
  Company Number: US-B.I. PHARMACEUTICALS,INC./RIDGEFIELD-2011-BP-12446BP

PATIENT
  Age: 81 Year
  Sex: Male

DRUGS (5)
  1. PRADAXA [Suspect]
     Indication: ATRIAL FIBRILLATION
     Dosage: 300 MG
     Dates: start: 20101207
  2. CARDIZEM CD [Concomitant]
     Dosage: 120 MG
     Dates: start: 20101026
  3. LANTUS [Concomitant]
     Dosage: 10 U
     Dates: start: 20100607
  4. ISOSORBIDE DN [Concomitant]
     Dosage: 40 MG
     Dates: start: 20101207
  5. TORSEMIDE [Concomitant]
     Dosage: 20 MG
     Dates: start: 20101207

REACTIONS (1)
  - GASTROINTESTINAL HAEMORRHAGE [None]
